FAERS Safety Report 7583010-5 (Version None)
Quarter: 2011Q2

REPORT INFORMATION
  Report Type: 
  Country: None (occurrence: None)
  Receive Date: 20110627
  Receipt Date: 20110627
  Transmission Date: 20111010
  Serious: Yes (Hospitalization)
  Sender: FDA-Public Use
  Company Number: None

PATIENT
  Age: 81 Year
  Sex: Female
  Weight: 67.1324 kg

DRUGS (2)
  1. KETOROLAC TROMETHAMINE [Suspect]
     Indication: PROCEDURAL PAIN
     Dosage: 1 DROP EVERY 4 HRS. OPHTHALMIC
     Route: 047
     Dates: start: 20110616, end: 20110622
  2. KETOROLAC TROMETHAMINE [Suspect]
     Indication: PROCEDURAL PAIN
     Dosage: 1 DROP EVERY 4 HRS. OPHTHALMIC
     Route: 047
     Dates: start: 20110505, end: 20110515

REACTIONS (14)
  - HYPERHIDROSIS [None]
  - ASTHENIA [None]
  - DRUG PRESCRIBING ERROR [None]
  - DYSPNOEA [None]
  - HYPERVENTILATION [None]
  - HYPOPNOEA [None]
  - INCORRECT DRUG ADMINISTRATION DURATION [None]
  - CHEST PAIN [None]
  - FATIGUE [None]
  - HYPOAESTHESIA [None]
  - CHEST DISCOMFORT [None]
  - LOWER RESPIRATORY TRACT INFECTION [None]
  - ABASIA [None]
  - ANXIETY [None]
